FAERS Safety Report 11642755 (Version 1)
Quarter: 2015Q4

REPORT INFORMATION
  Report Type: Spontaneous
  Country: US (occurrence: US)
  Receive Date: 20151020
  Receipt Date: 20151020
  Transmission Date: 20160304
  Serious: Yes (Hospitalization, Disabling, Other)
  Sender: FDA-Public Use
  Company Number: US-HOSPIRA-3041458

PATIENT
  Age: 48 Year
  Sex: Male
  Weight: 77.27 kg

DRUGS (5)
  1. AMIKACIN [Suspect]
     Active Substance: AMIKACIN
     Indication: BACTERIAL INFECTION
     Route: 042
     Dates: start: 2013, end: 2014
  2. XANAX [Concomitant]
     Active Substance: ALPRAZOLAM
     Indication: ANXIETY
  3. VFEND [Suspect]
     Active Substance: VORICONAZOLE
     Indication: BACTERIAL INFECTION
     Route: 048
  4. CEFOXITIN SODIUM [Suspect]
     Active Substance: CEFOXITIN SODIUM
     Indication: BACTERIAL INFECTION
     Route: 042
     Dates: start: 2013, end: 2014
  5. VFEND [Suspect]
     Active Substance: VORICONAZOLE
     Indication: ANTIBIOTIC THERAPY
     Route: 048

REACTIONS (7)
  - Precancerous skin lesion [Unknown]
  - Skin cancer [Unknown]
  - Leg amputation [Unknown]
  - Arthritis infective [Unknown]
  - Joint swelling [Unknown]
  - Deafness bilateral [Not Recovered/Not Resolved]
  - Myalgia [Unknown]

NARRATIVE: CASE EVENT DATE: 201301
